FAERS Safety Report 15466980 (Version 1)
Quarter: 2018Q4

REPORT INFORMATION
  Report Type: Spontaneous
  Country: US (occurrence: US)
  Receive Date: 20181005
  Receipt Date: 20181005
  Transmission Date: 20190204
  Serious: Yes (Other)
  Sender: FDA-Public Use
  Company Number: US-BEH-2018095401

PATIENT
  Sex: Female
  Weight: 126.98 kg

DRUGS (1)
  1. HIZENTRA [Suspect]
     Active Substance: HUMAN IMMUNOGLOBULIN G
     Indication: PRODUCT USED FOR UNKNOWN INDICATION
     Dosage: 25 G, UNK
     Route: 058

REACTIONS (2)
  - Weight decreased [Recovered/Resolved]
  - Infusion site swelling [Recovered/Resolved]
